FAERS Safety Report 14467350 (Version 2)
Quarter: 2018Q2

REPORT INFORMATION
  Report Type: Spontaneous
  Country: CN (occurrence: CN)
  Receive Date: 20180131
  Receipt Date: 20180425
  Transmission Date: 20180711
  Serious: Yes (Hospitalization, Other)
  Sender: FDA-Public Use
  Company Number: CN-LUPIN PHARMACEUTICALS INC.-2018-00417

PATIENT
  Age: 43 Year
  Sex: Female

DRUGS (1)
  1. DESOGESTREL AND ETHINYL ESTRADIOL [Suspect]
     Active Substance: DESOGESTREL\ETHINYL ESTRADIOL
     Indication: ORAL CONTRACEPTION
     Dosage: UNK (FOR MORE THAN 20 DAYS)
     Route: 048

REACTIONS (4)
  - Cerebral infarction [Recovering/Resolving]
  - Intracranial pressure increased [Recovering/Resolving]
  - Intracranial venous sinus thrombosis [Recovering/Resolving]
  - Epilepsy [Recovered/Resolved]
